FAERS Safety Report 8415629-3 (Version None)
Quarter: 2012Q2

REPORT INFORMATION
  Report Type: 
  Country: None (occurrence: None)
  Receive Date: 20120606
  Receipt Date: 20120523
  Transmission Date: 20120825
  Serious: Yes (Hospitalization)
  Sender: FDA-Public Use
  Company Number: SE-JNJFOC-20120601879

PATIENT
  Sex: Female

DRUGS (3)
  1. PALEXIA [Suspect]
     Indication: PAIN
     Route: 048
  2. METHADONE HCL [Concomitant]
     Indication: PRODUCT USED FOR UNKNOWN INDICATION
     Route: 065
  3. MORPHINE [Concomitant]
     Indication: PRODUCT USED FOR UNKNOWN INDICATION
     Route: 065

REACTIONS (3)
  - MYDRIASIS [None]
  - MIOSIS [None]
  - LOSS OF CONSCIOUSNESS [None]
